FAERS Safety Report 7942130-3 (Version None)
Quarter: 2011Q4

REPORT INFORMATION
  Report Type: 
  Country: None (occurrence: None)
  Receive Date: 20111128
  Receipt Date: 20111121
  Transmission Date: 20120403
  Serious: Yes (Death)
  Sender: FDA-Public Use
  Company Number: DE-UCBSA-035524

PATIENT
  Sex: Female

DRUGS (4)
  1. CERTOLIZUMAB PEGOL [Suspect]
     Indication: RHEUMATOID ARTHRITIS
     Route: 058
     Dates: start: 20110110, end: 20110101
  2. FOLCUR [Concomitant]
     Route: 048
     Dates: start: 20081001
  3. METHOTREXATE [Concomitant]
     Indication: RHEUMATOID ARTHRITIS
     Route: 058
     Dates: start: 19981027, end: 20110412
  4. METHOTREXATE [Concomitant]
     Route: 058
     Dates: start: 20110412, end: 20110425

REACTIONS (1)
  - PNEUMOCOCCAL SEPSIS [None]
